FAERS Safety Report 7406026-8 (Version None)
Quarter: 2011Q2

REPORT INFORMATION
  Report Type: 
  Country: None (occurrence: None)
  Receive Date: 20110411
  Receipt Date: 20110406
  Transmission Date: 20111010
  Serious: Yes (Other)
  Sender: FDA-Public Use
  Company Number: A0908784A

PATIENT
  Sex: Female

DRUGS (2)
  1. PAXIL [Suspect]
     Indication: DEPRESSION
     Dosage: 20MG UNKNOWN
     Route: 048
  2. PAROXETINE [Suspect]
     Indication: DEPRESSION
     Dosage: 20MG UNKNOWN
     Route: 048

REACTIONS (3)
  - AGGRESSION [None]
  - DRUG INEFFECTIVE [None]
  - INTENTIONAL SELF-INJURY [None]
